FAERS Safety Report 20856008 (Version 2)
Quarter: 2022Q2

REPORT INFORMATION
  Report Type: Spontaneous
  Country: PT (occurrence: PT)
  Receive Date: 20220520
  Receipt Date: 20220621
  Transmission Date: 20220721
  Serious: Yes (Other)
  Sender: FDA-Public Use
  Company Number: PT-ACRAF SpA-2022-027385

PATIENT
  Age: 66 Year
  Sex: Male

DRUGS (4)
  1. PREDNISOLONE [Suspect]
     Active Substance: PREDNISOLONE
     Indication: Giant cell arteritis
     Dosage: 40 MG
     Route: 065
  2. PREDNISOLONE [Suspect]
     Active Substance: PREDNISOLONE
     Indication: Polymyalgia rheumatica
     Route: 065
  3. TOCILIZUMAB [Concomitant]
     Active Substance: TOCILIZUMAB
     Indication: Product used for unknown indication
  4. METHOTREXATE [Concomitant]
     Active Substance: METHOTREXATE
     Indication: Product used for unknown indication

REACTIONS (8)
  - Back pain [Unknown]
  - Cushing^s syndrome [Unknown]
  - Pelvic fracture [Unknown]
  - Spinal fracture [Unknown]
  - Spinal fracture [Unknown]
  - Metabolic disorder [Unknown]
  - Weight increased [Unknown]
  - Fall [Unknown]
